FAERS Safety Report 4350658-0 (Version None)
Quarter: 2004Q2

REPORT INFORMATION
  Report Type: 
  Country: None (occurrence: None)
  Receive Date: 20040429
  Receipt Date: 20040416
  Transmission Date: 20050107
  Serious: Yes (Death, Hospitalization, Other)
  Sender: FDA-Public Use
  Company Number: A-CH2002-00377

PATIENT
  Age: 47 Year
  Sex: Female
  Weight: 52 kg

DRUGS (9)
  1. TRACLEER [Suspect]
     Indication: PULMONARY HYPERTENSION
     Dosage: 125 MG, BID, ORAL
     Route: 048
     Dates: start: 20020712, end: 20020715
  2. ZAROXOLYN [Concomitant]
  3. LASIX [Concomitant]
  4. ALDACTONE [Concomitant]
  5. ZYLORIC ^GLAXO WELLCOME^ (ALLOPURINOL) [Concomitant]
  6. SINTROM [Concomitant]
  7. FOLVITE (FOLIC ACID) [Concomitant]
  8. POTASSIUM CHLORIDE [Concomitant]
  9. OXYGEN [Concomitant]

REACTIONS (28)
  - ALCOHOLISM [None]
  - BEDRIDDEN [None]
  - BRADYPHRENIA [None]
  - CARDIAC FAILURE [None]
  - CONCOMITANT DISEASE PROGRESSION [None]
  - DELIRIUM TREMENS [None]
  - DEPRESSION [None]
  - DERMATITIS BULLOUS [None]
  - DIFFICULTY IN WALKING [None]
  - DISORIENTATION [None]
  - HALLUCINATION [None]
  - HYPERSENSITIVITY [None]
  - INFLUENZA LIKE ILLNESS [None]
  - LEUKOCYTOCLASTIC VASCULITIS [None]
  - MUSCLE CONTRACTIONS INVOLUNTARY [None]
  - OEDEMA PERIPHERAL [None]
  - OVERDOSE [None]
  - PAIN IN EXTREMITY [None]
  - PALMAR ERYTHEMA [None]
  - PERSONALITY CHANGE [None]
  - RASH PRURITIC [None]
  - REFUSAL OF TREATMENT BY PATIENT [None]
  - RENAL FAILURE ACUTE [None]
  - RIGHT VENTRICULAR FAILURE [None]
  - SPIDER NAEVUS [None]
  - TREATMENT NONCOMPLIANCE [None]
  - TREMOR [None]
  - VASCULITIS NECROTISING [None]
